FAERS Safety Report 16817272 (Version 2)
Quarter: 2019Q3

REPORT INFORMATION
  Report Type: Report from Study
  Country: IT (occurrence: IT)
  Receive Date: 20190917
  Receipt Date: 20190918
  Transmission Date: 20191005
  Serious: Yes (Death)
  Sender: FDA-Public Use
  Company Number: IT-TEVA-2019-IT-1107094

PATIENT
  Age: 72 Year
  Sex: Male

DRUGS (1)
  1. MYCOPHENOLATE MOFETIL. [Suspect]
     Active Substance: MYCOPHENOLATE MOFETIL
     Indication: TRANSPLANT REJECTION
     Route: 048
     Dates: end: 20190402

REACTIONS (4)
  - Skin striae [Fatal]
  - Graft versus host disease [Fatal]
  - Diarrhoea haemorrhagic [Fatal]
  - Enteritis [Fatal]

NARRATIVE: CASE EVENT DATE: 20190401
